FAERS Safety Report 17287819 (Version 1)
Quarter: 2020Q1

REPORT INFORMATION
  Report Type: Report from Study
  Country: JP (occurrence: JP)
  Receive Date: 20200120
  Receipt Date: 20200120
  Transmission Date: 20200409
  Serious: Yes (Hospitalization, Other)
  Sender: FDA-Public Use
  Company Number: JP-AUROBINDO-AUR-APL-2019-046740

PATIENT
  Age: 65 Year
  Sex: Male
  Weight: 49.6 kg

DRUGS (8)
  1. FOLOTYN [Suspect]
     Active Substance: PRALATREXATE
     Dosage: 30 MG/M2, SINGLE
     Route: 042
     Dates: start: 20180914, end: 20180914
  2. FOLOTYN [Suspect]
     Active Substance: PRALATREXATE
     Dosage: 30 MG/M2, UNK
     Route: 042
     Dates: start: 20181130, end: 20190104
  3. FOLIC ACID. [Concomitant]
     Active Substance: FOLIC ACID
     Indication: PROPHYLAXIS
     Dosage: UNK
     Route: 048
     Dates: start: 20180727, end: 20190123
  4. FOLOTYN [Suspect]
     Active Substance: PRALATREXATE
     Dosage: 30 MG/M2, UNK
     Route: 042
     Dates: start: 20181005, end: 20181109
  5. FOLOTYN [Suspect]
     Active Substance: PRALATREXATE
     Dosage: 30 MG/M2, UNK
     Route: 042
     Dates: end: 20190118
  6. RINDERON [Concomitant]
     Indication: ANGIOIMMUNOBLASTIC T-CELL LYMPHOMA
     Dosage: UNK MG/M2, UNK
     Route: 042
     Dates: start: 20180523
  7. FOLOTYN [Suspect]
     Active Substance: PRALATREXATE
     Indication: ANGIOIMMUNOBLASTIC T-CELL LYMPHOMA
     Dosage: 30 MG/M2, UNK
     Route: 042
     Dates: start: 20180817, end: 20180831
  8. VITAMIN B12 [Concomitant]
     Active Substance: CYANOCOBALAMIN
     Indication: PROPHYLAXIS
     Dosage: UNK
     Route: 030
     Dates: start: 20180816, end: 20181130

REACTIONS (5)
  - Platelet count decreased [Recovered/Resolved]
  - Bronchopulmonary aspergillosis [Recovering/Resolving]
  - Anaemia [Not Recovered/Not Resolved]
  - Proctalgia [Recovered/Resolved]
  - Pyrexia [Recovered/Resolved]

NARRATIVE: CASE EVENT DATE: 20180831
